FAERS Safety Report 6209116-0 (Version None)
Quarter: 2009Q2

REPORT INFORMATION
  Report Type: 
  Country: None (occurrence: None)
  Receive Date: 20090529
  Receipt Date: 20090528
  Transmission Date: 20091009
  Serious: Yes (Other)
  Sender: FDA-Public Use
  Company Number: DE-WYE-G03755609

PATIENT

DRUGS (1)
  1. TREVILOR [Suspect]
     Dosage: UNKNOWN
     Route: 048
     Dates: start: 20090101

REACTIONS (2)
  - CEREBROVASCULAR DISORDER [None]
  - DELUSIONAL DISORDER, UNSPECIFIED TYPE [None]
